FAERS Safety Report 24209315 (Version 1)
Quarter: 2024Q3

REPORT INFORMATION
  Report Type: Spontaneous
  Country: CN (occurrence: CN)
  Receive Date: 20240814
  Receipt Date: 20240814
  Transmission Date: 20241017
  Serious: Yes (Life-Threatening)
  Sender: PFIZER
  Company Number: CN-PFIZER INC-PV202400104304

PATIENT
  Age: 13 Year
  Sex: Female
  Weight: 32 kg

DRUGS (7)
  1. CYTARABINE [Suspect]
     Active Substance: CYTARABINE
     Indication: Lymphocytic leukaemia
     Dosage: 0.06 G, 2X/DAY
     Route: 058
     Dates: start: 20240725, end: 20240731
  2. PEGASPARGASE [Suspect]
     Active Substance: PEGASPARGASE
     Indication: Lymphocytic leukaemia
     Dosage: 2340 IU, 1X/DAY
     Route: 030
     Dates: start: 20240725, end: 20240725
  3. CYCLOPHOSPHAMIDE [Suspect]
     Active Substance: CYCLOPHOSPHAMIDE
     Indication: Lymphocytic leukaemia
     Dosage: 1.17 G, 1X/DAY
     Route: 041
     Dates: start: 20240725, end: 20240725
  4. VINDESINE SULFATE [Suspect]
     Active Substance: VINDESINE SULFATE
     Indication: Prolymphocytic leukaemia
     Dosage: 3.5 MG, 1X/DAY
     Route: 042
     Dates: start: 20240725, end: 20240725
  5. AZATHIOPRINE [Suspect]
     Active Substance: AZATHIOPRINE
     Indication: Lymphocytic leukaemia
     Dosage: 46.5 MG, 1X/DAY
     Route: 048
     Dates: start: 20240725, end: 20240731
  6. SODIUM CHLORIDE [Concomitant]
     Active Substance: SODIUM CHLORIDE
     Indication: Vehicle solution use
     Dosage: 250 ML, 1X/DAY
     Route: 041
     Dates: start: 20240725, end: 20240725
  7. SODIUM CHLORIDE [Concomitant]
     Active Substance: SODIUM CHLORIDE
     Indication: Vehicle solution use
     Dosage: 20 ML, 1X/DAY
     Route: 042
     Dates: start: 20240725, end: 20240725

REACTIONS (5)
  - Myelosuppression [Recovering/Resolving]
  - Nausea [Recovering/Resolving]
  - Pyrexia [Recovering/Resolving]
  - Abdominal discomfort [Recovering/Resolving]
  - Dizziness [Recovering/Resolving]

NARRATIVE: CASE EVENT DATE: 20240726
